FAERS Safety Report 8613335-3 (Version None)
Quarter: 2012Q3

REPORT INFORMATION
  Report Type: 
  Country: None (occurrence: None)
  Receive Date: 20120822
  Receipt Date: 20120313
  Transmission Date: 20120928
  Serious: Yes (Hospitalization)
  Sender: FDA-Public Use
  Company Number: JP-009507513-1208JPN007313

PATIENT

DRUGS (13)
  1. PEG-INTRON [Suspect]
     Dosage: 1.23MCG/KG/WEEK
     Route: 058
     Dates: start: 20120324
  2. PEG-INTRON [Suspect]
     Indication: HEPATITIS C
     Dosage: 1.48MCG/KG/WEEK
     Route: 058
     Dates: start: 20120121, end: 20120217
  3. PEG-INTRON [Suspect]
     Dosage: 1.10MCG/KG/WEEK
     Route: 058
     Dates: start: 20120303, end: 20120323
  4. REBETOL [Suspect]
     Route: 048
     Dates: start: 20120311, end: 20120414
  5. REBETOL [Suspect]
     Indication: HEPATITIS C
     Route: 048
     Dates: start: 20120121, end: 20120203
  6. REBETOL [Suspect]
     Route: 048
     Dates: start: 20120415, end: 20120512
  7. TELAVIC [Suspect]
     Route: 048
     Dates: start: 20120301, end: 20120414
  8. TELAVIC [Suspect]
     Indication: HEPATITIS C
     Route: 048
     Dates: start: 20120121, end: 20120229
  9. NEXIUM [Concomitant]
     Route: 048
     Dates: end: 20120512
  10. PEG-INTRON [Suspect]
     Dosage: 1.38MCG/KG/WEEK
     Route: 058
     Dates: start: 20120218, end: 20120302
  11. REBETOL [Suspect]
     Route: 048
     Dates: start: 20120513
  12. REBETOL [Suspect]
     Route: 048
     Dates: start: 20120204, end: 20120310
  13. XYZAL [Concomitant]
     Indication: PROPHYLAXIS
     Route: 048
     Dates: start: 20120121

REACTIONS (4)
  - PLATELET COUNT DECREASED [None]
  - HEPATIC ENCEPHALOPATHY [None]
  - HYPERAMMONAEMIA [None]
  - DEHYDRATION [None]
